FAERS Safety Report 23628257 (Version 3)
Quarter: 2024Q3

REPORT INFORMATION
  Report Type: Spontaneous
  Country: US (occurrence: US)
  Receive Date: 20240313
  Receipt Date: 20240821
  Transmission Date: 20241016
  Serious: No
  Sender: BRISTOL MYERS SQUIBB
  Company Number: US-BRISTOL-MYERS SQUIBB COMPANY-2024-039332

PATIENT
  Age: 45 Year
  Sex: Female

DRUGS (2)
  1. ORENCIA [Suspect]
     Active Substance: ABATACEPT
     Indication: Rheumatoid arthritis
     Route: 058
     Dates: start: 202206
  2. ORENCIA [Suspect]
     Active Substance: ABATACEPT
     Route: 058
     Dates: start: 202206

REACTIONS (5)
  - White blood cell count decreased [Unknown]
  - Nasopharyngitis [Unknown]
  - Influenza [Unknown]
  - COVID-19 [Unknown]
  - Rheumatoid arthritis [Unknown]
